FAERS Safety Report 16845434 (Version 1)
Quarter: 2019Q4

REPORT INFORMATION
  Report Type: Spontaneous
  Country: US (occurrence: US)
  Receive Date: 20190924
  Receipt Date: 20190924
  Transmission Date: 20200122
  Serious: Yes (Other)
  Sender: FDA-Public Use
  Company Number: None

PATIENT
  Age: 63 Year
  Sex: Female
  Weight: 51.3 kg

DRUGS (17)
  1. VITAMIN C [Concomitant]
     Active Substance: ASCORBIC ACID
  2. ZINC. [Concomitant]
     Active Substance: ZINC
  3. ADVIL [Concomitant]
     Active Substance: IBUPROFEN
  4. VITAMIN D [Concomitant]
     Active Substance: VITAMIN D NOS
  5. VITAMIN B [Concomitant]
     Active Substance: VITAMIN B
  6. FLAXSEED [Concomitant]
     Active Substance: FLAX SEED
  7. BABY ASPIRIN [Concomitant]
     Active Substance: ASPIRIN
  8. DUAVEE [Concomitant]
     Active Substance: BAZEDOXIFENE ACETATE\ESTROGENS, CONJUGATED
  9. CALCIUM [Concomitant]
     Active Substance: CALCIUM
  10. ACIDOPHILUS [Concomitant]
     Active Substance: LACTOBACILLUS ACIDOPHILUS
  11. CLARITIN [Concomitant]
     Active Substance: LORATADINE
  12. ECHINACEA [Concomitant]
     Active Substance: ECHINACEA, UNSPECIFIED
  13. MAGNESIUM [Concomitant]
     Active Substance: MAGNESIUM
  14. MULTIVITAMIN [Concomitant]
     Active Substance: VITAMINS
  15. VITAMINS [Concomitant]
     Active Substance: VITAMINS
  16. SYNTHROID [Suspect]
     Active Substance: LEVOTHYROXINE SODIUM
     Indication: BLOOD PARATHYROID HORMONE DECREASED
     Dosage: ?          QUANTITY:1 TABLET(S);?
     Route: 048
  17. LEVOTHYROXINE. [Suspect]
     Active Substance: LEVOTHYROXINE
     Indication: BLOOD PARATHYROID HORMONE DECREASED
     Route: 048

REACTIONS (2)
  - Panic attack [None]
  - Therapy change [None]

NARRATIVE: CASE EVENT DATE: 20130301
